FAERS Safety Report 7296475-3 (Version None)
Quarter: 2011Q1

REPORT INFORMATION
  Report Type: 
  Country: None (occurrence: None)
  Receive Date: 20110216
  Receipt Date: 20110203
  Transmission Date: 20110831
  Serious: Yes (Hospitalization)
  Sender: FDA-Public Use
  Company Number: PHHY2011DE09229

PATIENT
  Age: 35 Year
  Sex: Male

DRUGS (3)
  1. ACENOCOUMAROL [Concomitant]
  2. TRAZODONE [Suspect]
     Dosage: 300 MG, UNK
  3. TRAZODONE [Suspect]
     Indication: SLEEP DISORDER
     Dosage: 150 MG, QD , AT BED TIME

REACTIONS (5)
  - INTERNATIONAL NORMALISED RATIO INCREASED [None]
  - PRIAPISM [None]
  - PENILE NECROSIS [None]
  - INCORRECT DOSE ADMINISTERED [None]
  - THROMBOSIS [None]
